FAERS Safety Report 14371338 (Version 4)
Quarter: 2018Q3

REPORT INFORMATION
  Report Type: Report from Study
  Country: BE (occurrence: BE)
  Receive Date: 20180110
  Receipt Date: 20180808
  Transmission Date: 20181010
  Serious: Yes (Death, Other)
  Sender: FDA-Public Use
  Company Number: PHHY2017BE197959

PATIENT
  Age: 78 Year
  Sex: Female

DRUGS (2)
  1. LEE011 [Suspect]
     Active Substance: RIBOCICLIB
     Indication: BREAST CANCER
     Dosage: 600 MG, QD
     Route: 048
     Dates: start: 20171208
  2. FEMARA [Suspect]
     Active Substance: LETROZOLE
     Indication: BREAST CANCER
     Dosage: 1 DF, QD
     Route: 048
     Dates: start: 20171208

REACTIONS (8)
  - Abdominal discomfort [Unknown]
  - Renal failure [Unknown]
  - Diarrhoea [Unknown]
  - Decreased appetite [Unknown]
  - Breast cancer [Fatal]
  - Malignant neoplasm progression [Fatal]
  - Fatigue [Unknown]
  - Blood creatinine increased [Recovered/Resolved]

NARRATIVE: CASE EVENT DATE: 20171220
